FAERS Safety Report 4708472-X (Version None)
Quarter: 2005Q3

REPORT INFORMATION
  Report Type: 
  Country: None (occurrence: None)
  Receive Date: 20050705
  Receipt Date: 20050628
  Transmission Date: 20060218
  Serious: Yes (Life-Threatening)
  Sender: FDA-Public Use
  Company Number: 2005-130024-NL

PATIENT
  Age: 72 Year
  Sex: Male

DRUGS (14)
  1. DANAPAROID SODIUM [Suspect]
     Indication: DISSEMINATED INTRAVASCULAR COAGULATION
     Dosage: 1250 ANTI_XA BID INTRAVENOUS DRIP
     Route: 041
     Dates: start: 20050425, end: 20050502
  2. GABEXATE MESILATE [Concomitant]
  3. LEVOTHYROXINE SODIUM [Concomitant]
  4. FERROUS FUMARATE [Concomitant]
  5. URSODEOXYCHOLIC ACID [Concomitant]
  6. GLYCYRRHIZIC ACID, AMMONIUM SALT [Concomitant]
  7. GLUTATHIONE [Concomitant]
  8. VANCOMYCIN [Concomitant]
  9. FUROSEMIDE [Concomitant]
  10. CEFTIAXONE SODIUM [Concomitant]
  11. ANTITHROMBIN III [Concomitant]
  12. HYDROCORTISONE SODIUM SUCCINATE [Concomitant]
  13. ULINASTATIN [Concomitant]
  14. RANITIDINE HYDROCHLORIDE [Concomitant]

REACTIONS (7)
  - ALANINE AMINOTRANSFERASE INCREASED [None]
  - ASPARTATE AMINOTRANSFERASE INCREASED [None]
  - BLOOD CREATININE INCREASED [None]
  - BLOOD LACTATE DEHYDROGENASE INCREASED [None]
  - BLOOD UREA INCREASED [None]
  - PANCREATITIS [None]
  - WHITE BLOOD CELL COUNT INCREASED [None]
